FAERS Safety Report 23708758 (Version 1)
Quarter: 2024Q2

REPORT INFORMATION
  Report Type: Spontaneous
  Country: US (occurrence: US)
  Receive Date: 20240404
  Receipt Date: 20240404
  Transmission Date: 20240716
  Serious: No
  Sender: FDA-Public Use
  Company Number: US-NEUROCRINE BIOSCIENCES INC.-2024NBI02798

PATIENT
  Age: 39 Year
  Sex: Female

DRUGS (1)
  1. INGREZZA [Suspect]
     Active Substance: VALBENAZINE
     Indication: Bipolar disorder
     Dosage: 40 MILLIGRAM, QD
     Route: 065

REACTIONS (2)
  - Hypersensitivity [Unknown]
  - Off label use [Unknown]
